FAERS Safety Report 10996624 (Version 3)
Quarter: 2015Q3

REPORT INFORMATION
  Report Type: Spontaneous
  Country: US (occurrence: US)
  Receive Date: 20150408
  Receipt Date: 20150722
  Transmission Date: 20151125
  Serious: Yes (Hospitalization, Other)
  Sender: FDA-Public Use
  Company Number: US-009507513-1504USA002600

PATIENT
  Age: 85 Year
  Sex: Male

DRUGS (1)
  1. INTEGRILIN [Suspect]
     Active Substance: EPTIFIBATIDE
     Indication: ACUTE MYOCARDIAL INFARCTION
     Dosage: 0.75 MG, UNK
     Route: 042
     Dates: start: 20150323, end: 20150323

REACTIONS (7)
  - Shock [Unknown]
  - Haemodialysis [Unknown]
  - Hypotension [Unknown]
  - Catheter site haematoma [Unknown]
  - Anuria [Unknown]
  - Injection site haemorrhage [Unknown]
  - Retroperitoneal haemorrhage [Unknown]

NARRATIVE: CASE EVENT DATE: 201503
